FAERS Safety Report 25518418 (Version 1)
Quarter: 2025Q3

REPORT INFORMATION
  Report Type: Report from Study
  Country: US (occurrence: US)
  Receive Date: 20250704
  Receipt Date: 20250704
  Transmission Date: 20251020
  Serious: Yes (Other)
  Sender: SERVIER
  Company Number: US-SERVIER-S25009095

PATIENT

DRUGS (2)
  1. VORASIDENIB [Suspect]
     Active Substance: VORASIDENIB
     Indication: Brain neoplasm malignant
     Dosage: 40 MG, QD
     Route: 048
     Dates: start: 202411
  2. VORASIDENIB [Suspect]
     Active Substance: VORASIDENIB
     Route: 048
     Dates: end: 202506

REACTIONS (5)
  - Parkinson^s disease [Unknown]
  - Hepatic enzyme increased [Unknown]
  - Diarrhoea [Unknown]
  - Immobile [Unknown]
  - Asthenia [Unknown]

NARRATIVE: CASE EVENT DATE: 20250601
